FAERS Safety Report 12600293 (Version 1)
Quarter: 2016Q3

REPORT INFORMATION
  Report Type: Spontaneous
  Country: US (occurrence: US)
  Receive Date: 20160727
  Receipt Date: 20160727
  Transmission Date: 20161109
  Serious: No
  Sender: FDA-Public Use
  Company Number: US-BRACCO-013661

PATIENT
  Age: 48 Year
  Sex: Female

DRUGS (3)
  1. E-Z-HD [Suspect]
     Active Substance: BARIUM SULFATE
     Indication: X-RAY WITH CONTRAST
     Dosage: 1 CUP
     Route: 048
     Dates: start: 20160609, end: 20160609
  2. E-Z-PAQUE [Suspect]
     Active Substance: BARIUM SULFATE
     Indication: X-RAY WITH CONTRAST UPPER GASTROINTESTINAL TRACT
     Dosage: 1 CUP
     Route: 048
     Dates: start: 20160609, end: 20160609
  3. E-Z-GAS II [Suspect]
     Active Substance: CITRIC ACID MONOHYDRATE\DIMETHICONE\SODIUM BICARBONATE
     Indication: X-RAY WITH CONTRAST UPPER GASTROINTESTINAL TRACT
     Dosage: TWO GRANULES
     Route: 048
     Dates: start: 20160609, end: 20160609

REACTIONS (9)
  - Tongue discolouration [Not Recovered/Not Resolved]
  - Skin wrinkling [None]
  - Tongue dry [Not Recovered/Not Resolved]
  - Thirst [Unknown]
  - Pollakiuria [Unknown]
  - Swollen tongue [Not Recovered/Not Resolved]
  - Tongue blistering [Not Recovered/Not Resolved]
  - Dry skin [Not Recovered/Not Resolved]
  - Aptyalism [Not Recovered/Not Resolved]

NARRATIVE: CASE EVENT DATE: 20160609
